FAERS Safety Report 8463193-5 (Version None)
Quarter: 2012Q2

REPORT INFORMATION
  Report Type: 
  Country: None (occurrence: None)
  Receive Date: 20120625
  Receipt Date: 20120614
  Transmission Date: 20120825
  Serious: Yes (Other)
  Sender: FDA-Public Use
  Company Number: JP-VERTEX PHARMACEUTICALS INC.-AE-2012-007600

PATIENT
  Age: 69 Year
  Sex: Male

DRUGS (7)
  1. RIBAVIRIN [Concomitant]
     Indication: HEPATITIS C
     Route: 048
     Dates: end: 20120529
  2. RIBAVIRIN [Concomitant]
     Route: 048
     Dates: start: 20120529, end: 20120612
  3. RIBAVIRIN [Concomitant]
     Route: 048
     Dates: start: 20120612
  4. PREDNISOLONE [Concomitant]
     Route: 048
     Dates: end: 20120612
  5. PEGINTERFERON ALFA-2B [Concomitant]
     Route: 058
  6. TELAVIC (TELAPREVIR) [Suspect]
     Indication: HEPATITIS C
     Route: 048
     Dates: start: 20120320
  7. ALLOPURINOL [Concomitant]
     Route: 048
     Dates: start: 20120401

REACTIONS (5)
  - RENAL DISORDER [None]
  - HYPERURICAEMIA [None]
  - PRURITUS [None]
  - RASH ERYTHEMATOUS [None]
  - ANAEMIA [None]
